FAERS Safety Report 20393101 (Version 1)
Quarter: 2022Q1

REPORT INFORMATION
  Report Type: Spontaneous
  Country: US (occurrence: US)
  Receive Date: 20220128
  Receipt Date: 20220128
  Transmission Date: 20220424
  Serious: No
  Sender: FDA-Public Use
  Company Number: US-PFIZER INC-202101497121

PATIENT
  Age: 40 Year
  Sex: Female

DRUGS (2)
  1. XELJANZ [Suspect]
     Active Substance: TOFACITINIB CITRATE
     Dosage: UNK
     Route: 048
  2. SIMPONI [Concomitant]
     Active Substance: GOLIMUMAB
     Dosage: UNK

REACTIONS (1)
  - Drug ineffective [Recovered/Resolved]
